FAERS Safety Report 7520351-1 (Version None)
Quarter: 2011Q2

REPORT INFORMATION
  Report Type: 
  Country: None (occurrence: None)
  Receive Date: 20110602
  Receipt Date: 20101015
  Transmission Date: 20111010
  Serious: No
  Sender: FDA-Public Use
  Company Number: US-BAYER-201037163NA

PATIENT
  Age: 34 Year
  Sex: Female

DRUGS (1)
  1. AVELOX [Suspect]
     Dosage: UNK
     Dates: start: 20100920, end: 20100929

REACTIONS (4)
  - DIZZINESS [None]
  - NAUSEA [None]
  - FEELING ABNORMAL [None]
  - ABDOMINAL DISCOMFORT [None]
